FAERS Safety Report 5791277-9 (Version None)
Quarter: 2008Q2

REPORT INFORMATION
  Report Type: 
  Country: None (occurrence: None)
  Receive Date: 20080626
  Receipt Date: 20080401
  Transmission Date: 20081010
  Serious: No
  Sender: FDA-Public Use
  Company Number: A0712657A

PATIENT
  Age: 23 Year
  Sex: Female

DRUGS (3)
  1. ALLI [Suspect]
  2. BIRTH CONTROL [Concomitant]
  3. HOODIA [Concomitant]

REACTIONS (2)
  - PHARMACEUTICAL PRODUCT COMPLAINT [None]
  - WEIGHT INCREASED [None]
